FAERS Safety Report 17933807 (Version 4)
Quarter: 2020Q4

REPORT INFORMATION
  Report Type: Report from Study
  Country: None (occurrence: CA)
  Receive Date: 20200623
  Receipt Date: 20201117
  Transmission Date: 20210113
  Serious: Yes (Hospitalization)
  Sender: FDA-Public Use
  Company Number: CA-ABBVIE-20K-028-3452127-00

PATIENT
  Age: 64 Year
  Sex: Female

DRUGS (2)
  1. RINVOQ [Suspect]
     Active Substance: UPADACITINIB
     Route: 048
     Dates: start: 2020
  2. RINVOQ [Suspect]
     Active Substance: UPADACITINIB
     Indication: RHEUMATOID ARTHRITIS
     Route: 048
     Dates: end: 2020

REACTIONS (5)
  - Asthenia [Recovering/Resolving]
  - Myocardial infarction [Recovered/Resolved]
  - Tachycardia [Recovered/Resolved]
  - Troponin increased [Recovered/Resolved]
  - Myocarditis [Recovering/Resolving]

NARRATIVE: CASE EVENT DATE: 20200603
